FAERS Safety Report 5259798-5 (Version None)
Quarter: 2007Q1

REPORT INFORMATION
  Report Type: 
  Country: None (occurrence: None)
  Receive Date: 20061117
  Receipt Date: 20060502
  Transmission Date: 20070707
  Serious: Yes (Other)
  Sender: FDA-Public Use
  Company Number: US-JNJFOC-20060205280

PATIENT
  Age: 48 Year
  Sex: Female
  Weight: 78.0187 kg

DRUGS (10)
  1. LEVAQUIN [Suspect]
     Indication: URINARY TRACT INFECTION
     Dosage: 500 MG, ORAL
     Route: 048
     Dates: start: 20060112
  2. VYTORIN [Concomitant]
  3. SERZONE [Concomitant]
  4. LEVOXYL [Concomitant]
  5. TRAZODONE HCL [Concomitant]
  6. MAXZIDE [Concomitant]
  7. GLUCOPHAGE [Concomitant]
  8. CLIMARA-PRO (ALL OTHER THERAPEUTIC PRODUCTS) [Concomitant]
  9. CONCERTA [Concomitant]
  10. ZONEGRAN [Concomitant]

REACTIONS (1)
  - HYPOGLYCAEMIA [None]
